FAERS Safety Report 4462939-0 (Version None)
Quarter: 2004Q3

REPORT INFORMATION
  Report Type: 
  Country: None (occurrence: None)
  Receive Date: 20040927
  Receipt Date: 20040916
  Transmission Date: 20050211
  Serious: Yes (Hospitalization)
  Sender: FDA-Public Use
  Company Number: 2004068230

PATIENT
  Age: 3 Year
  Sex: Male

DRUGS (3)
  1. ZYRTEC [Suspect]
     Indication: PRURITUS
     Dosage: 5 ML (5 ML, 1 IN 1 D), ORAL
     Route: 048
     Dates: start: 20040810, end: 20040812
  2. ACETAMINOPHEN [Concomitant]
  3. IBUPROFEN [Concomitant]

REACTIONS (6)
  - DELIRIUM [None]
  - EXCITABILITY [None]
  - INSOMNIA [None]
  - MICTURITION URGENCY [None]
  - PYREXIA [None]
  - SPEECH DISORDER [None]
